FAERS Safety Report 18024575 (Version 1)
Quarter: 2020Q3

REPORT INFORMATION
  Report Type: Spontaneous
  Country: US (occurrence: US)
  Receive Date: 20200714
  Receipt Date: 20200714
  Transmission Date: 20201103
  Serious: Yes (Death)
  Sender: FDA-Public Use
  Company Number: None

PATIENT
  Sex: Female

DRUGS (15)
  1. METOPROL SUC [Concomitant]
  2. BUDESONIDE. [Concomitant]
     Active Substance: BUDESONIDE
  3. LOSARTAN POT [Concomitant]
     Active Substance: LOSARTAN POTASSIUM
  4. ONDANSETRON [Concomitant]
     Active Substance: ONDANSETRON
  5. FOLIC ACID. [Concomitant]
     Active Substance: FOLIC ACID
  6. METOPROL TAR [Concomitant]
  7. EZETIMBE [Concomitant]
     Active Substance: EZETIMIBE
  8. ROSUVASTATIN. [Concomitant]
     Active Substance: ROSUVASTATIN
  9. CUNDAMYCIN [Concomitant]
  10. MECLIZINE [Concomitant]
     Active Substance: MECLIZINE HYDROCHLORIDE
  11. PREDNISONE. [Concomitant]
     Active Substance: PREDNISONE
  12. ORENCIA [Suspect]
     Active Substance: ABATACEPT
     Indication: RHEUMATOID ARTHRITIS
     Route: 058
     Dates: start: 20200204
  13. PROCHLORPER [Concomitant]
  14. BENZONATATE. [Suspect]
     Active Substance: BENZONATATE
  15. XIFAXAN [Concomitant]
     Active Substance: RIFAXIMIN

REACTIONS (1)
  - Death [None]
